FAERS Safety Report 15097067 (Version 2)
Quarter: 2018Q3

REPORT INFORMATION
  Report Type: Report from Study
  Country: None (occurrence: CA)
  Receive Date: 20180702
  Receipt Date: 20180709
  Transmission Date: 20181010
  Serious: Yes (Hospitalization)
  Sender: FDA-Public Use
  Company Number: CA-ABBVIE-18S-028-2404544-00

PATIENT
  Age: 35 Year
  Sex: Female
  Weight: 90.8 kg

DRUGS (2)
  1. LUPRON DEPOT [Suspect]
     Active Substance: LEUPROLIDE ACETATE
     Indication: ENDOMETRIOSIS
     Route: 030
     Dates: start: 20160301
  2. CERTRALIN [Concomitant]
     Indication: PRODUCT USED FOR UNKNOWN INDICATION

REACTIONS (10)
  - Nausea [Unknown]
  - Hypotension [Recovered/Resolved]
  - Heart rate irregular [Recovered/Resolved]
  - Dizziness [Unknown]
  - Headache [Unknown]
  - Coagulopathy [Not Recovered/Not Resolved]
  - Head injury [Not Recovered/Not Resolved]
  - Headache [Not Recovered/Not Resolved]
  - Heart rate decreased [Recovered/Resolved]
  - Vomiting [Recovered/Resolved]

NARRATIVE: CASE EVENT DATE: 201806
